FAERS Safety Report 8578060-6 (Version None)
Quarter: 2012Q3

REPORT INFORMATION
  Report Type: 
  Country: None (occurrence: None)
  Receive Date: 20120808
  Receipt Date: 20120803
  Transmission Date: 20120928
  Serious: Yes (Hospitalization)
  Sender: FDA-Public Use
  Company Number: PHHO2012DE006482

PATIENT
  Sex: Male
  Weight: 72 kg

DRUGS (4)
  1. CYCLOSPORINE [Suspect]
     Dosage: UNK
  2. ENOXAPARIN [Suspect]
  3. PREDNISOLONE [Suspect]
     Indication: IMMUNOSUPPRESSION
     Dosage: UNK
     Dates: start: 20111007
  4. MYCOPHENOLATE MOFETIL [Suspect]
     Indication: LIVER TRANSPLANT
     Dosage: UNK
     Route: 048
     Dates: start: 20111007

REACTIONS (4)
  - PELVIC FRACTURE [None]
  - OSTEOPOROSIS [None]
  - BACK PAIN [None]
  - FRACTURED SACRUM [None]
